FAERS Safety Report 4526655-9 (Version None)
Quarter: 2004Q4

REPORT INFORMATION
  Report Type: 
  Country: None (occurrence: None)
  Receive Date: 20041214
  Receipt Date: 20040917
  Transmission Date: 20050328
  Serious: Yes (Other)
  Sender: FDA-Public Use
  Company Number: JP-GLAXOSMITHKLINE-B0346465A

PATIENT
  Age: 35 Year
  Sex: Male

DRUGS (4)
  1. PAXIL [Suspect]
     Indication: DEPRESSION
     Dosage: 10MG PER DAY
     Route: 048
     Dates: start: 20040902, end: 20040914
  2. NAUZELIN [Concomitant]
     Indication: VOMITING
     Dosage: 10MG PER DAY
     Route: 048
     Dates: start: 20040906, end: 20040913
  3. TOLEDOMIN [Concomitant]
     Indication: DEPRESSION
     Route: 048
     Dates: start: 20040127, end: 20040901
  4. DOGMATYL [Concomitant]
     Indication: DEPRESSION
     Route: 048
     Dates: start: 20040127

REACTIONS (2)
  - MORBID THOUGHTS [None]
  - SUICIDAL IDEATION [None]
